FAERS Safety Report 22340442 (Version 1)
Quarter: 2023Q2

REPORT INFORMATION
  Report Type: Spontaneous
  Country: FR (occurrence: FR)
  Receive Date: 20230518
  Receipt Date: 20230518
  Transmission Date: 20230722
  Serious: Yes (Hospitalization)
  Sender: FDA-Public Use
  Company Number: None

PATIENT
  Age: 51 Year
  Sex: Male
  Weight: 90 kg

DRUGS (2)
  1. PEMETREXED [Suspect]
     Active Substance: PEMETREXED
     Indication: Peritoneal mesothelioma malignant
     Dosage: 500MG/M2
     Route: 042
     Dates: start: 20230314, end: 20230404
  2. CISPLATIN [Suspect]
     Active Substance: CISPLATIN
     Indication: Peritoneal mesothelioma malignant
     Dosage: 75MG/M2
     Route: 042
     Dates: start: 20230314, end: 20230404

REACTIONS (1)
  - Febrile bone marrow aplasia [Not Recovered/Not Resolved]

NARRATIVE: CASE EVENT DATE: 20230411
